FAERS Safety Report 14456763 (Version 1)
Quarter: 2018Q1

REPORT INFORMATION
  Report Type: Spontaneous
  Country: US (occurrence: US)
  Receive Date: 20180126
  Receipt Date: 20180126
  Transmission Date: 20180509
  Serious: Yes (Hospitalization)
  Sender: FDA-Public Use
  Company Number: None

PATIENT
  Age: 33 Year
  Sex: Male
  Weight: 54.5 kg

DRUGS (1)
  1. INTRON A [Suspect]
     Active Substance: INTERFERON ALFA-2B
     Dosage: MILLION UNITS
     Dates: end: 20130123

REACTIONS (3)
  - Disease progression [None]
  - Metastases to abdominal cavity [None]
  - Metastases to central nervous system [None]

NARRATIVE: CASE EVENT DATE: 20130614
